FAERS Safety Report 4415454-4 (Version None)
Quarter: 2004Q3

REPORT INFORMATION
  Report Type: 
  Country: None (occurrence: None)
  Receive Date: 20040730
  Receipt Date: 20040716
  Transmission Date: 20050211
  Serious: Yes (Death)
  Sender: FDA-Public Use
  Company Number: A-CH2004-06877

PATIENT
  Age: 56 Year
  Sex: Female
  Weight: 56 kg

DRUGS (7)
  1. TRACLEER [Suspect]
     Indication: PULMONARY HYPERTENSION
     Dosage: SEE IMAGE
     Route: 048
     Dates: end: 20031224
  2. TRACLEER [Suspect]
     Indication: PULMONARY HYPERTENSION
     Dosage: SEE IMAGE
     Route: 048
     Dates: start: 20021104
  3. DIURETICS [Concomitant]
  4. WARFARIN SODIUM [Concomitant]
  5. ILOPROST (ILOPROST) [Concomitant]
  6. CYCLIZINE (CYCLIZINE) [Concomitant]
  7. ELTROXIN (LEVOTHYROXINE SODIUM) [Concomitant]

REACTIONS (3)
  - ASPARTATE AMINOTRANSFERASE INCREASED [None]
  - CONDITION AGGRAVATED [None]
  - PULMONARY HYPERTENSION [None]
